FAERS Safety Report 25097513 (Version 1)
Quarter: 2025Q1

REPORT INFORMATION
  Report Type: Spontaneous
  Country: US (occurrence: US)
  Receive Date: 20250320
  Receipt Date: 20250320
  Transmission Date: 20250409
  Serious: No
  Sender: SANOFI AVENTIS
  Company Number: US-SA-2025SA079558

PATIENT
  Sex: Female

DRUGS (22)
  1. AUBAGIO [Suspect]
     Active Substance: TERIFLUNOMIDE
     Indication: Crohn^s disease
     Dosage: 1 DF, QD
     Route: 048
  2. FARXIGA [Concomitant]
     Active Substance: DAPAGLIFLOZIN PROPANEDIOL
  3. HYOSCYAMINE [Concomitant]
     Active Substance: HYOSCYAMINE
  4. LISINOPRIL [Concomitant]
     Active Substance: LISINOPRIL
  5. METOPROLOL SUCCINATE [Concomitant]
     Active Substance: METOPROLOL SUCCINATE
  6. ONDANSETRON [Concomitant]
     Active Substance: ONDANSETRON
  7. CHANTIX [Concomitant]
     Active Substance: VARENICLINE TARTRATE
  8. ALLEGRA ALLERGY [Concomitant]
     Active Substance: FEXOFENADINE HYDROCHLORIDE
  9. LEVAQUIN [Concomitant]
     Active Substance: LEVOFLOXACIN
  10. DOXYCYCLINE [Concomitant]
     Active Substance: DOXYCYCLINE
  11. BACTRIM DS [Concomitant]
     Active Substance: SULFAMETHOXAZOLE\TRIMETHOPRIM
  12. PENTASA [Concomitant]
     Active Substance: MESALAMINE
  13. ONDANSETRON [Concomitant]
     Active Substance: ONDANSETRON
  14. BUDESONIDE [Concomitant]
     Active Substance: BUDESONIDE
     Dosage: 3 MG, QD
  15. GABAPENTIN [Concomitant]
     Active Substance: GABAPENTIN
  16. SIMVASTATIN [Concomitant]
     Active Substance: SIMVASTATIN
  17. TIZANIDINE [Concomitant]
     Active Substance: TIZANIDINE
  18. SUPREP BOWEL PREP [Concomitant]
     Active Substance: MAGNESIUM SULFATE\POTASSIUM SULFATE\SODIUM SULFATE
  19. LABETALOL [Concomitant]
     Active Substance: LABETALOL
  20. SERTRALINE [Concomitant]
     Active Substance: SERTRALINE HYDROCHLORIDE
  21. AVONEX [Concomitant]
     Active Substance: INTERFERON BETA-1A
  22. PANTOPRAZOLE [Concomitant]
     Active Substance: PANTOPRAZOLE

REACTIONS (2)
  - Drug hypersensitivity [Recovered/Resolved]
  - Product use in unapproved indication [Unknown]
